FAERS Safety Report 6031130-9 (Version None)
Quarter: 2009Q1

REPORT INFORMATION
  Report Type: 
  Country: None (occurrence: None)
  Receive Date: 20090108
  Receipt Date: 20090105
  Transmission Date: 20090719
  Serious: Yes (Hospitalization)
  Sender: FDA-Public Use
  Company Number: GB-WYE-G02878109

PATIENT
  Age: 37 Year

DRUGS (4)
  1. VENLAFAXINE HYDROCHLORIDE [Suspect]
     Indication: DEPRESSION
     Route: 048
  2. DEPAKOTE [Concomitant]
     Dosage: UNKNOWN
  3. QUETIAPINE FUMARATE [Concomitant]
     Indication: PSYCHOTIC DISORDER
     Route: 048
     Dates: start: 20081127, end: 20080101
  4. QUETIAPINE FUMARATE [Concomitant]
     Dosage: UNKNOWN
     Dates: start: 20080101

REACTIONS (2)
  - CONSTIPATION [None]
  - FAECALOMA [None]
